FAERS Safety Report 6329477-1 (Version None)
Quarter: 2009Q3

REPORT INFORMATION
  Report Type: 
  Country: None (occurrence: None)
  Receive Date: 20090826
  Receipt Date: 20090817
  Transmission Date: 20100115
  Serious: Yes (Life-Threatening, Hospitalization, Other)
  Sender: FDA-Public Use
  Company Number: US-ELI_LILLY_AND_COMPANY-US200908003562

PATIENT
  Sex: Male
  Weight: 115.19 kg

DRUGS (10)
  1. BYETTA [Suspect]
     Indication: TYPE 2 DIABETES MELLITUS
     Dosage: 5 UG, 2/D
     Route: 058
     Dates: start: 20080101, end: 20080101
  2. BYETTA [Suspect]
     Dosage: 10 UG, 2/D
     Route: 058
     Dates: start: 20080101, end: 20080101
  3. BYETTA [Suspect]
     Dosage: 10 UG, 2/D
     Route: 058
     Dates: start: 20080101, end: 20090801
  4. ATENOLOL [Concomitant]
     Dosage: 100 MG, DAILY (1/D)
  5. ZOCOR [Concomitant]
     Dosage: 40 MG, DAILY (1/D)
  6. SYMBICORT [Concomitant]
     Dosage: UNK, OTHER
  7. POTASSIUM CHLORIDE [Concomitant]
     Dosage: 10 MEQ, 2/D
  8. FUROSEMIDE [Concomitant]
     Dosage: 40 MG, UNKNOWN
  9. FISH OIL [Concomitant]
     Dosage: UNK, 2/D
  10. OXYGEN [Concomitant]
     Dosage: UNK, UNKNOWN

REACTIONS (11)
  - ARTHRALGIA [None]
  - BLOOD TRIGLYCERIDES INCREASED [None]
  - CHEST PAIN [None]
  - DYSPNOEA [None]
  - HAEMORRHAGE [None]
  - LOCALISED INFECTION [None]
  - NAUSEA [None]
  - OFF LABEL USE [None]
  - OXYGEN SATURATION DECREASED [None]
  - PNEUMONIA [None]
  - POOR PERIPHERAL CIRCULATION [None]
